FAERS Safety Report 5615229-4 (Version None)
Quarter: 2008Q1

REPORT INFORMATION
  Report Type: 
  Country: None (occurrence: None)
  Receive Date: 20080205
  Receipt Date: 20080205
  Transmission Date: 20080703
  Serious: Yes (Other)
  Sender: FDA-Public Use
  Company Number: None

PATIENT
  Age: 52 Year
  Sex: Female
  Weight: 70.3075 kg

DRUGS (1)
  1. CHANTIX [Suspect]
     Indication: SMOKING CESSATION THERAPY
     Dosage: FIRST WEEK, .5, 2ND WK 5X2 1XDAY, 2XDAY PO
     Route: 048
     Dates: start: 20071201, end: 20071215

REACTIONS (8)
  - ARTHRALGIA [None]
  - DISCOMFORT [None]
  - GAIT DISTURBANCE [None]
  - JOINT SWELLING [None]
  - MIDDLE INSOMNIA [None]
  - PAIN [None]
  - SWELLING [None]
  - TENDONITIS [None]
